FAERS Safety Report 18664965 (Version 1)
Quarter: 2020Q4

REPORT INFORMATION
  Report Type: Report from Study
  Country: DE (occurrence: DE)
  Receive Date: 20201225
  Receipt Date: 20201225
  Transmission Date: 20210114
  Serious: Yes (Hospitalization)
  Sender: FDA-Public Use
  Company Number: DE-SHIRE-DE201718180

PATIENT
  Sex: Female
  Weight: 69 kg

DRUGS (7)
  1. CANDIO-HERMAL PLUS [Concomitant]
     Indication: FUNGAL SKIN INFECTION
  2. TEDUGLUTIDE [Suspect]
     Active Substance: TEDUGLUTIDE
     Indication: SHORT-BOWEL SYNDROME
     Dosage: 3.5 MG, 1X/DAY:QD (0.36 ML)
     Route: 065
     Dates: start: 20161108
  3. TEDUGLUTIDE [Suspect]
     Active Substance: TEDUGLUTIDE
     Indication: SHORT-BOWEL SYNDROME
     Dosage: 3.5 MG, 1X/DAY:QD (0.36 ML)
     Route: 065
     Dates: start: 20161108
  4. UREA. [Concomitant]
     Active Substance: UREA
     Indication: DRY SKIN
  5. LOCACORTEN VIOFORM [Concomitant]
     Active Substance: CLIOQUINOL\FLUMETHASONE
     Indication: SKIN INFECTION
  6. TEDUGLUTIDE [Suspect]
     Active Substance: TEDUGLUTIDE
     Indication: SHORT-BOWEL SYNDROME
     Dosage: 3.5 MG, 1X/DAY:QD (0.36 ML)
     Route: 065
     Dates: start: 20161108
  7. TEDUGLUTIDE [Suspect]
     Active Substance: TEDUGLUTIDE
     Indication: SHORT-BOWEL SYNDROME
     Dosage: 3.5 MG, 1X/DAY:QD (0.36 ML)
     Route: 065
     Dates: start: 20161108

REACTIONS (1)
  - Giant cell tumour of tendon sheath [Recovered/Resolved]

NARRATIVE: CASE EVENT DATE: 20170710
